FAERS Safety Report 7807203-4 (Version None)
Quarter: 2011Q4

REPORT INFORMATION
  Report Type: 
  Country: None (occurrence: None)
  Receive Date: 20111011
  Receipt Date: 20111007
  Transmission Date: 20120403
  Serious: Yes (Death, Hospitalization, Other)
  Sender: FDA-Public Use
  Company Number: PHHY2011DE79677

PATIENT
  Sex: Female
  Weight: 70 kg

DRUGS (15)
  1. ZOMETA [Suspect]
     Dosage: 4 MG/5ML, EVERY 4 WEEKS
     Route: 042
     Dates: start: 20110921
  2. FEMARA [Suspect]
     Indication: BREAST CANCER
     Route: 048
  3. TORSEMIDE [Concomitant]
     Dosage: 10 MG, DAILY
     Route: 048
  4. KALINOR-BRAUSETABLETTEN [Concomitant]
  5. MARCUMAR [Concomitant]
  6. NALOXONE [Concomitant]
     Indication: PAIN
     Route: 048
  7. ZOMETA [Suspect]
     Dosage: 4 MG/5ML, EVERY 4 WEEKS
     Route: 042
     Dates: start: 20110824
  8. SPIRONOLACTONE [Concomitant]
     Indication: HYPERALDOSTERONISM
     Dosage: 25 MG, DAILY
     Route: 048
  9. XIPAMIDE [Concomitant]
     Dosage: 40 MG, UNK
  10. LISINOPRIL [Concomitant]
     Indication: CORONARY ARTERY DISEASE
     Dosage: 20 MG, DAILY
     Route: 048
  11. ENOXAPARIN [Concomitant]
     Dosage: 0.6 ML, BID
     Route: 058
  12. ZOMETA [Suspect]
     Indication: PROPHYLAXIS
     Dosage: 4 MG/5ML, EVERY 4 WEEK
     Route: 042
     Dates: start: 20110504
  13. TAXOL [Concomitant]
     Dosage: 80 MG, UNK
     Route: 042
  14. METOPROLOL SUCCINATE [Concomitant]
     Indication: CORONARY ARTERY DISEASE
     Dosage: 190 MG, UNK
     Route: 048
  15. PANTOPRAZOLE [Concomitant]
     Dosage: 80 MG, UNK

REACTIONS (13)
  - DIARRHOEA [None]
  - BREAST CANCER METASTATIC [None]
  - METASTASES TO THE MEDIASTINUM [None]
  - NEOPLASM PROGRESSION [None]
  - EXCORIATION [None]
  - GENERAL PHYSICAL HEALTH DETERIORATION [None]
  - NEOPLASM MALIGNANT [None]
  - METASTATIC GASTRIC CANCER [None]
  - FALL [None]
  - ARTHROPATHY [None]
  - PERITONEAL CARCINOMA METASTATIC [None]
  - METASTASES TO BONE [None]
  - LACERATION [None]
